FAERS Safety Report 8931686 (Version 1)
Quarter: 2012Q4

REPORT INFORMATION
  Report Type: 
  Country: US (occurrence: US)
  Receive Date: 20121128
  Receipt Date: 20121128
  Transmission Date: 20130627
  Serious: Yes (Other)
  Sender: FDA-Public Use
  Company Number: US-PFIZER INC-2012297768

PATIENT
  Age: 53 Year
  Sex: Female
  Weight: 77.1 kg

DRUGS (3)
  1. LYRICA [Suspect]
     Indication: FIBROMYALGIA
     Dosage: 200 mg, 2x/day
     Route: 048
  2. LYRICA [Suspect]
     Dosage: 275 mg, UNK
     Route: 048
  3. LEVOTHYROXINE [Concomitant]
     Indication: UNSPECIFIED DISORDER OF THYROID
     Dosage: 88 ug, UNK

REACTIONS (4)
  - Uterine neoplasm [Unknown]
  - Blood cholesterol increased [Unknown]
  - Blood calcium decreased [Unknown]
  - Drug ineffective [Unknown]
